FAERS Safety Report 5574831-9 (Version None)
Quarter: 2007Q4

REPORT INFORMATION
  Report Type: 
  Country: None (occurrence: None)
  Receive Date: 20071221
  Receipt Date: 20071221
  Transmission Date: 20080405
  Serious: Yes (Hospitalization)
  Sender: FDA-Public Use
  Company Number: None

PATIENT
  Sex: Female
  Weight: 64.4108 kg

DRUGS (1)
  1. PLAVIX [Suspect]
     Indication: TRANSIENT ISCHAEMIC ATTACK
     Dosage: 75 MG 1/DAY PO
     Route: 048
     Dates: start: 20071203, end: 20071216

REACTIONS (4)
  - DRUG INEFFECTIVE [None]
  - IMMOBILE [None]
  - JOINT SWELLING [None]
  - MUSCULOSKELETAL PAIN [None]
